FAERS Safety Report 9996494 (Version 1)
Quarter: 2014Q1

REPORT INFORMATION
  Report Type: Spontaneous
  Country: US (occurrence: None)
  Receive Date: 20140310
  Receipt Date: 20140310
  Transmission Date: 20141002
  Serious: Yes (Other)
  Sender: FDA-Public Use
  Company Number: None

PATIENT
  Age: 77 Year
  Sex: Female
  Weight: 69.85 kg

DRUGS (9)
  1. TIKOSYN [Suspect]
     Indication: ATRIAL FIBRILLATION
     Dosage: 1 CAP BID
     Route: 048
  2. CYCLOBENZAPRINE [Concomitant]
  3. OMEPRAZOLE [Concomitant]
  4. LEVOTHYROXIN [Concomitant]
  5. LISINOPRIL [Concomitant]
  6. CARVEDILOL [Concomitant]
  7. COUMADIN [Concomitant]
  8. LEXAPRO [Concomitant]
  9. LORAZEPAM [Concomitant]

REACTIONS (3)
  - Rash generalised [None]
  - Erythema [None]
  - Nasal discomfort [None]
